FAERS Safety Report 8713945 (Version 2)
Quarter: 2013Q1

REPORT INFORMATION
  Report Type: Spontaneous
  Country: DE (occurrence: DE)
  Receive Date: 20120808
  Receipt Date: 20130101
  Transmission Date: 20140127
  Serious: Yes (Hospitalization)
  Sender: FDA-Public Use
  Company Number: DE-TEVA-351503GER

PATIENT
  Age: 59 Year
  Sex: Male
  Weight: 113 kg

DRUGS (1)
  1. TAMSULOSIN [Suspect]
     Indication: BENIGN PROSTATIC HYPERPLASIA
     Dosage: .4 MILLIGRAM DAILY;
     Route: 048

REACTIONS (3)
  - Idiopathic thrombocytopenic purpura [Not Recovered/Not Resolved]
  - Megakaryocytes increased [Not Recovered/Not Resolved]
  - Haemorrhage [Not Recovered/Not Resolved]
